FAERS Safety Report 9188131 (Version 1)
Quarter: 2013Q1

REPORT INFORMATION
  Report Type: Spontaneous
  Country: US (occurrence: US)
  Receive Date: 20130325
  Receipt Date: 20130325
  Transmission Date: 20140127
  Serious: No
  Sender: FDA-Public Use
  Company Number: US-PFIZER INC-2013096403

PATIENT
  Age: 39 Year
  Sex: Female
  Weight: 72.56 kg

DRUGS (6)
  1. NEURONTIN [Suspect]
     Indication: FIBROMYALGIA
     Dosage: 250 MG, SIX TO SEVEN TIMES A DAY
     Dates: start: 2007
  2. LYRICA [Suspect]
     Indication: FIBROMYALGIA
     Dosage: 75 MG, 3X/DAY
     Dates: start: 2011
  3. LISINOPRIL [Suspect]
     Indication: HYPERTENSION
     Dosage: 40 MG/DAY
  4. VICODIN [Suspect]
     Indication: FIBROMYALGIA
     Dosage: 7.5/750 MG, 3X/DAY
     Dates: start: 2007
  5. DURAGESIC [Suspect]
     Indication: FIBROMYALGIA
     Dosage: 75 UG, EVERY 3 DAYS
     Route: 062
  6. BACLOFEN [Suspect]
     Indication: FIBROMYALGIA
     Dosage: 10 MG DAILY AT NIGHT

REACTIONS (3)
  - Amnesia [Not Recovered/Not Resolved]
  - Drug ineffective [Unknown]
  - Off label use [Unknown]
